FAERS Safety Report 25362293 (Version 1)
Quarter: 2025Q2

REPORT INFORMATION
  Report Type: Spontaneous
  Country: US (occurrence: None)
  Receive Date: 20250523
  Receipt Date: 20250523
  Transmission Date: 20250716
  Serious: No
  Sender: FDA-CTU
  Company Number: None

PATIENT
  Age: 26 Year
  Sex: Female
  Weight: 90 kg

DRUGS (1)
  1. LEVOCETIRIZINE [Suspect]
     Active Substance: LEVOCETIRIZINE
     Indication: Multiple allergies
     Dates: start: 20220501, end: 20250519

REACTIONS (2)
  - Therapy interrupted [None]
  - Pruritus [None]

NARRATIVE: CASE EVENT DATE: 20250521
